FAERS Safety Report 9551264 (Version 2)
Quarter: 2013Q4

REPORT INFORMATION
  Report Type: Spontaneous
  Country: US (occurrence: US)
  Receive Date: 20130925
  Receipt Date: 20131028
  Transmission Date: 20140711
  Serious: No
  Sender: FDA-Public Use
  Company Number: US-009507513-1309USA007748

PATIENT
  Sex: Male

DRUGS (1)
  1. NASONEX [Suspect]
     Dosage: 2 SPRAYS EVERY DAY,
     Route: 045
     Dates: start: 20120109

REACTIONS (3)
  - Drug dose omission [Unknown]
  - Device kink [Unknown]
  - No adverse event [Unknown]
